FAERS Safety Report 10047812 (Version 3)
Quarter: 2014Q3

REPORT INFORMATION
  Report Type: Report from Study
  Country: AU (occurrence: AU)
  Receive Date: 20140331
  Receipt Date: 20140701
  Transmission Date: 20150326
  Serious: Yes (Hospitalization, Disabling)
  Sender: FDA-Public Use
  Company Number: AU-BRISTOL-MYERS SQUIBB COMPANY-20549077

PATIENT
  Age: 41 Year
  Sex: Female

DRUGS (6)
  1. MEGAFOL [Concomitant]
     Active Substance: FOLIC ACID
  2. METHOTREXATE [Concomitant]
     Active Substance: METHOTREXATE
  3. ORENCIA [Suspect]
     Active Substance: ABATACEPT
     Indication: RHEUMATOID ARTHRITIS
     Route: 042
     Dates: start: 20130625
  4. VOLTAREN [Concomitant]
     Active Substance: DICLOFENAC SODIUM
  5. PREDNISOLONE. [Concomitant]
     Active Substance: PREDNISOLONE
  6. NUROFEN [Concomitant]
     Active Substance: IBUPROFEN

REACTIONS (1)
  - Mouth ulceration [Recovering/Resolving]

NARRATIVE: CASE EVENT DATE: 20140310
